FAERS Safety Report 12694450 (Version 1)
Quarter: 2016Q3

REPORT INFORMATION
  Report Type: Report from Study
  Country: FR (occurrence: FR)
  Receive Date: 20160829
  Receipt Date: 20160829
  Transmission Date: 20161109
  Serious: Yes (Hospitalization)
  Sender: FDA-Public Use
  Company Number: FR-ASTELLAS-2016US033244

PATIENT
  Sex: Male

DRUGS (1)
  1. ERLOTINIB [Suspect]
     Active Substance: ERLOTINIB
     Indication: LUNG NEOPLASM MALIGNANT
     Dosage: UNK, UNKNOWN FREQ.
     Route: 042
     Dates: start: 20160128, end: 20160428

REACTIONS (3)
  - Fall [Unknown]
  - General physical health deterioration [Unknown]
  - Confusional state [Unknown]

NARRATIVE: CASE EVENT DATE: 20160517
